FAERS Safety Report 9224552 (Version 1)
Quarter: 2013Q2

REPORT INFORMATION
  Report Type: Spontaneous
  Country: US (occurrence: None)
  Receive Date: 20130411
  Receipt Date: 20130411
  Transmission Date: 20140414
  Serious: Yes (Hospitalization)
  Sender: FDA-Public Use
  Company Number: None

PATIENT
  Age: 82 Year
  Sex: Female
  Weight: 88 kg

DRUGS (13)
  1. COUMADIN [Suspect]
     Indication: AORTIC VALVE REPLACEMENT
     Dosage: ?   ?   PO?CHRONIC
     Route: 048
  2. COUMADIN [Suspect]
     Indication: MITRAL VALVE REPLACEMENT
     Dosage: ?   ?   PO?CHRONIC
     Route: 048
  3. PLAVIX [Suspect]
     Indication: AORTIC VALVE REPLACEMENT
     Dosage: 75MG  DAILY  PO?CHRONIC
     Route: 048
  4. PLAVIX [Suspect]
     Indication: MITRAL VALVE REPLACEMENT
     Dosage: 75MG  DAILY  PO?CHRONIC
     Route: 048
  5. ASPIRIN [Suspect]
     Route: 048
  6. VIT D [Concomitant]
  7. PEPCID [Concomitant]
  8. FOLIC ACID [Concomitant]
  9. ZETIA [Concomitant]
  10. NASAL SPRAY [Concomitant]
  11. SNYTROID [Concomitant]
  12. METOPROLOL [Concomitant]
  13. LIPITOR [Concomitant]

REACTIONS (9)
  - Peripheral ischaemia [None]
  - Coagulopathy [None]
  - Anaemia [None]
  - Gastrointestinal haemorrhage [None]
  - International normalised ratio increased [None]
  - Hostility [None]
  - Pain [None]
  - Refusal of treatment by patient [None]
  - Suicidal ideation [None]
